FAERS Safety Report 7962030-2 (Version None)
Quarter: 2011Q4

REPORT INFORMATION
  Report Type: 
  Country: None (occurrence: None)
  Receive Date: 20111207
  Receipt Date: 20111125
  Transmission Date: 20120403
  Serious: Yes (Death, Other)
  Sender: FDA-Public Use
  Company Number: JP-UCBSA-044127

PATIENT
  Age: 81 Year
  Sex: Female
  Weight: 39 kg

DRUGS (7)
  1. ZONISAMIDE [Concomitant]
     Indication: STATUS EPILEPTICUS
     Dosage: TOTAL DAILY DOSE: 200 MG
     Route: 048
     Dates: start: 20110806, end: 20111015
  2. BETAMETHASONE [Concomitant]
     Dosage: DAILY DOSE- 8 MG
     Route: 042
     Dates: start: 20111005, end: 20111010
  3. KEPPRA [Suspect]
     Indication: EPILEPSY
     Route: 048
     Dates: start: 20111005, end: 20111013
  4. ZONISAMIDE [Concomitant]
     Indication: EPILEPSY
     Dosage: TOTAL DAILY DOSE: 200 MG
     Route: 048
     Dates: start: 20110806, end: 20111015
  5. BETAMETHASONE [Concomitant]
     Dosage: 4 MG
     Route: 042
     Dates: start: 20111011, end: 20111013
  6. LAC-B [Concomitant]
     Dosage: DAILY DOSE- 3 G
     Route: 048
     Dates: start: 20111011, end: 20111015
  7. KEPPRA [Suspect]
     Indication: STATUS EPILEPTICUS
     Route: 048
     Dates: start: 20111005, end: 20111013

REACTIONS (3)
  - HEPATIC FUNCTION ABNORMAL [None]
  - LYMPHOMA [None]
  - PLATELET COUNT DECREASED [None]
